FAERS Safety Report 18044965 (Version 1)
Quarter: 2020Q3

REPORT INFORMATION
  Report Type: Spontaneous
  Country: US (occurrence: US)
  Receive Date: 20200720
  Receipt Date: 20200720
  Transmission Date: 20201103
  Serious: Yes (Disabling, Other)
  Sender: FDA-Public Use
  Company Number: US-PURDUE-USA-2020-0153414

PATIENT
  Sex: Female

DRUGS (9)
  1. VICODIN [Suspect]
     Active Substance: ACETAMINOPHEN\HYDROCODONE BITARTRATE
     Indication: BACK DISORDER
  2. KADIAN [Suspect]
     Active Substance: MORPHINE SULFATE
     Indication: BACK DISORDER
  3. OXYCODONE HYDROCHLORIDE (SIMILAR TO NDA 22?272) [Suspect]
     Active Substance: OXYCODONE HYDROCHLORIDE
     Indication: PAIN
     Dosage: 5 MG, BID
     Route: 048
     Dates: start: 2012, end: 2018
  4. KADIAN [Suspect]
     Active Substance: MORPHINE SULFATE
     Indication: ARTHRITIS
  5. KADIAN [Suspect]
     Active Substance: MORPHINE SULFATE
     Indication: PAIN
     Dosage: UNK
     Route: 048
     Dates: start: 2014
  6. OXYCODONE HYDROCHLORIDE (SIMILAR TO NDA 22?272) [Suspect]
     Active Substance: OXYCODONE HYDROCHLORIDE
     Indication: ARTHRITIS
     Dosage: 10 MG, BID
     Route: 048
     Dates: start: 2012, end: 2018
  7. OXYCODONE HYDROCHLORIDE (SIMILAR TO NDA 22?272) [Suspect]
     Active Substance: OXYCODONE HYDROCHLORIDE
     Indication: BACK DISORDER
  8. VICODIN [Suspect]
     Active Substance: ACETAMINOPHEN\HYDROCODONE BITARTRATE
     Indication: PAIN
     Dosage: 1 DF, Q6H
     Route: 048
     Dates: start: 2011, end: 2012
  9. VICODIN [Suspect]
     Active Substance: ACETAMINOPHEN\HYDROCODONE BITARTRATE
     Indication: ARTHRITIS

REACTIONS (10)
  - Memory impairment [Unknown]
  - Fibromyalgia [Unknown]
  - Pneumonia [Unknown]
  - Abnormal behaviour [Unknown]
  - Tremor [Unknown]
  - Carpal tunnel syndrome [Unknown]
  - Basal cell carcinoma [Unknown]
  - Disability [Unknown]
  - Withdrawal syndrome [Unknown]
  - Illness [Recovered/Resolved]

NARRATIVE: CASE EVENT DATE: 2011
